FAERS Safety Report 15308654 (Version 1)
Quarter: 2018Q3

REPORT INFORMATION
  Report Type: Other
  Country: US (occurrence: US)
  Receive Date: 20180822
  Receipt Date: 20180822
  Transmission Date: 20181010
  Serious: No
  Sender: FDA-Public Use
  Company Number: US-OSMOTICA_PHARMACEUTICAL_US_LLC-POI0573201700043

PATIENT
  Sex: Female

DRUGS (1)
  1. KHEDEZLA EXTENDED?RELEASE [Suspect]
     Active Substance: DESVENLAFAXINE
     Dates: start: 201706

REACTIONS (1)
  - Constipation [Unknown]

NARRATIVE: CASE EVENT DATE: 201706
